FAERS Safety Report 15041467 (Version 1)
Quarter: 2018Q2

REPORT INFORMATION
  Report Type: Spontaneous
  Country: US (occurrence: US)
  Receive Date: 20180621
  Receipt Date: 20180621
  Transmission Date: 20180711
  Serious: Yes (Other)
  Sender: FDA-Public Use
  Company Number: US-HORIZON-KRY-0179-2018

PATIENT
  Age: 57 Year
  Sex: Male

DRUGS (1)
  1. KRYSTEXXA [Suspect]
     Active Substance: PEGLOTICASE
     Indication: GOUT
     Dosage: 8 MG EVERY 2 WEEKS
     Dates: start: 20180524, end: 20180607

REACTIONS (5)
  - Chest discomfort [Unknown]
  - Body temperature increased [Unknown]
  - Dyspnoea [Unknown]
  - Blood uric acid increased [Unknown]
  - Erythema [Unknown]
